FAERS Safety Report 24116863 (Version 1)
Quarter: 2024Q3

REPORT INFORMATION
  Report Type: Spontaneous
  Country: US (occurrence: US)
  Receive Date: 20240722
  Receipt Date: 20240722
  Transmission Date: 20241017
  Serious: No
  Sender: ROCHE
  Company Number: US-ROCHE-10000028866

PATIENT
  Age: 58 Year
  Sex: Female

DRUGS (2)
  1. ALECTINIB [Suspect]
     Active Substance: ALECTINIB
     Indication: Carcinoid tumour pulmonary
     Route: 065
  2. LORLATINIB [Concomitant]
     Active Substance: LORLATINIB
     Indication: Carcinoid tumour pulmonary
     Route: 065

REACTIONS (2)
  - Drug resistance [Unknown]
  - Disease progression [Unknown]
